FAERS Safety Report 19682814 (Version 2)
Quarter: 2021Q4

REPORT INFORMATION
  Report Type: Report from Study
  Country: US (occurrence: US)
  Receive Date: 20210810
  Receipt Date: 20211202
  Transmission Date: 20220303
  Serious: Yes (Death, Hospitalization, Other)
  Sender: FDA-Public Use
  Company Number: US-SHIRE-US201804498

PATIENT
  Age: 60 Year
  Sex: Female
  Weight: 55 kg

DRUGS (20)
  1. TEDUGLUTIDE [Suspect]
     Active Substance: TEDUGLUTIDE
     Indication: Short-bowel syndrome
     Dosage: 2.38 MG, 1X/DAY:QD
     Route: 065
     Dates: start: 20131009, end: 20150121
  2. TEDUGLUTIDE [Suspect]
     Active Substance: TEDUGLUTIDE
     Indication: Short-bowel syndrome
     Dosage: 2.38 MG, 1X/DAY:QD
     Route: 065
     Dates: start: 20131009, end: 20150121
  3. TEDUGLUTIDE [Suspect]
     Active Substance: TEDUGLUTIDE
     Indication: Short-bowel syndrome
     Dosage: 2.38 MG, 1X/DAY:QD
     Route: 065
     Dates: start: 20131009, end: 20150121
  4. TEDUGLUTIDE [Suspect]
     Active Substance: TEDUGLUTIDE
     Indication: Short-bowel syndrome
     Dosage: 2.38 MG, 1X/DAY:QD
     Route: 065
     Dates: start: 20131009, end: 20150121
  5. TEDUGLUTIDE [Suspect]
     Active Substance: TEDUGLUTIDE
     Dosage: 2.65 MG, 1X/DAY:QD
     Route: 065
     Dates: start: 20160121, end: 20161128
  6. TEDUGLUTIDE [Suspect]
     Active Substance: TEDUGLUTIDE
     Dosage: 2.65 MG, 1X/DAY:QD
     Route: 065
     Dates: start: 20160121, end: 20161128
  7. TEDUGLUTIDE [Suspect]
     Active Substance: TEDUGLUTIDE
     Dosage: 2.65 MG, 1X/DAY:QD
     Route: 065
     Dates: start: 20160121, end: 20161128
  8. TEDUGLUTIDE [Suspect]
     Active Substance: TEDUGLUTIDE
     Dosage: 2.65 MG, 1X/DAY:QD
     Route: 065
     Dates: start: 20160121, end: 20161128
  9. TEDUGLUTIDE [Suspect]
     Active Substance: TEDUGLUTIDE
     Dosage: 2.38 MG, 1X/DAY:QD
     Route: 065
     Dates: start: 20161128, end: 20161129
  10. TEDUGLUTIDE [Suspect]
     Active Substance: TEDUGLUTIDE
     Dosage: 2.38 MG, 1X/DAY:QD
     Route: 065
     Dates: start: 20161128, end: 20161129
  11. TEDUGLUTIDE [Suspect]
     Active Substance: TEDUGLUTIDE
     Dosage: 2.38 MG, 1X/DAY:QD
     Route: 065
     Dates: start: 20161128, end: 20161129
  12. TEDUGLUTIDE [Suspect]
     Active Substance: TEDUGLUTIDE
     Dosage: 2.38 MG, 1X/DAY:QD
     Route: 065
     Dates: start: 20161128, end: 20161129
  13. TEDUGLUTIDE [Suspect]
     Active Substance: TEDUGLUTIDE
     Dosage: 2.33 MG, UNK
     Route: 065
     Dates: start: 20161207
  14. TEDUGLUTIDE [Suspect]
     Active Substance: TEDUGLUTIDE
     Dosage: 2.33 MG, UNK
     Route: 065
     Dates: start: 20161207
  15. TEDUGLUTIDE [Suspect]
     Active Substance: TEDUGLUTIDE
     Dosage: 2.33 MG, UNK
     Route: 065
     Dates: start: 20161207
  16. TEDUGLUTIDE [Suspect]
     Active Substance: TEDUGLUTIDE
     Dosage: 2.33 MG, UNK
     Route: 065
     Dates: start: 20161207
  17. QUESTRAN [Concomitant]
     Active Substance: CHOLESTYRAMINE
     Indication: Diarrhoea
     Dosage: UNK
     Route: 065
  18. XIFAXAN [Concomitant]
     Active Substance: RIFAXIMIN
     Indication: Small intestinal obstruction
     Dosage: UNK
     Route: 065
  19. URSODIOL [Concomitant]
     Active Substance: URSODIOL
     Indication: Prophylaxis
     Dosage: UNK
     Route: 065
  20. TPN [Concomitant]
     Active Substance: AMINO ACIDS\DEXTROSE\ELECTROLYTES NOS\SOYBEAN OIL
     Indication: Product used for unknown indication
     Dosage: UNK
     Route: 065

REACTIONS (2)
  - Respiratory failure [Fatal]
  - Pneumonia [Recovered/Resolved]

NARRATIVE: CASE EVENT DATE: 20180205
